FAERS Safety Report 22915143 (Version 3)
Quarter: 2023Q4

REPORT INFORMATION
  Report Type: Spontaneous
  Country: US (occurrence: US)
  Receive Date: 20230907
  Receipt Date: 20231121
  Transmission Date: 20240110
  Serious: Yes (Other)
  Sender: FDA-Public Use
  Company Number: US-BRISTOL-MYERS SQUIBB COMPANY-2023-125606

PATIENT
  Age: 81 Year
  Sex: Female
  Weight: 66.68 kg

DRUGS (1)
  1. POMALYST [Suspect]
     Active Substance: POMALIDOMIDE
     Indication: Plasma cell myeloma
     Dosage: FREQUENCY: DAYS 1-21, DAILY
     Route: 048

REACTIONS (4)
  - Cerebral disorder [Unknown]
  - Rectal haemorrhage [Unknown]
  - Fatigue [Unknown]
  - White blood cell count decreased [Unknown]
